FAERS Safety Report 25573732 (Version 2)
Quarter: 2025Q3

REPORT INFORMATION
  Report Type: Report from Study
  Country: JP (occurrence: JP)
  Receive Date: 20250717
  Receipt Date: 20250918
  Transmission Date: 20251021
  Serious: Yes (Death)
  Sender: SHIONOGI
  Company Number: JP-shionogi-202500007315

PATIENT
  Age: 53 Year
  Sex: Female
  Weight: 62.8 kg

DRUGS (10)
  1. CEFIDEROCOL [Suspect]
     Active Substance: CEFIDEROCOL
     Indication: Bacteraemia
     Route: 041
     Dates: start: 20250107, end: 20250107
  2. CEFIDEROCOL [Suspect]
     Active Substance: CEFIDEROCOL
     Route: 041
     Dates: start: 20250108, end: 20250111
  3. AMIKACIN SULFATE [Concomitant]
     Active Substance: AMIKACIN SULFATE
     Indication: Bacteraemia
     Route: 065
     Dates: start: 20250106, end: 20250109
  4. TEICOPLANIN [Concomitant]
     Active Substance: TEICOPLANIN
     Indication: Bacteraemia
     Dosage: SINCE MORE THAN 2 WEEKS BEFORE THE START OF FETROJA
     Route: 065
     Dates: end: 20250111
  5. MEROPENEM [Concomitant]
     Active Substance: MEROPENEM
     Indication: Bacteraemia
     Dosage: SINCE MORE THAN 2 WEEKS BEFORE THE START OF FETROJA
     Route: 065
     Dates: end: 20250107
  6. DEFITELIO [Concomitant]
     Active Substance: DEFIBROTIDE SODIUM
     Indication: Product used for unknown indication
     Route: 065
     Dates: end: 20250111
  7. URSODIOL [Concomitant]
     Active Substance: URSODIOL
     Indication: Prophylaxis
     Route: 048
     Dates: end: 20250109
  8. ZOVIRAX [Concomitant]
     Active Substance: ACYCLOVIR
     Indication: Prophylaxis
     Route: 048
     Dates: end: 20250109
  9. LANSOPRAZOLE [Concomitant]
     Active Substance: LANSOPRAZOLE
     Indication: Prophylaxis
     Route: 048
     Dates: end: 20250109
  10. METRONIDAZOLE [Concomitant]
     Active Substance: METRONIDAZOLE
     Indication: Bacteraemia
     Route: 065
     Dates: start: 20250107, end: 20250111

REACTIONS (1)
  - Bacteraemia [Fatal]

NARRATIVE: CASE EVENT DATE: 20250108
